FAERS Safety Report 10094617 (Version 2)
Quarter: 2014Q4

REPORT INFORMATION
  Report Type: Spontaneous
  Country: US (occurrence: US)
  Receive Date: 20140422
  Receipt Date: 20141020
  Transmission Date: 20150528
  Serious: Yes (Death, Other)
  Sender: FDA-Public Use
  Company Number: US-PFIZER INC-2014109969

PATIENT
  Age: 47 Year
  Sex: Female

DRUGS (1)
  1. CELEBREX [Suspect]
     Active Substance: CELECOXIB
     Dosage: 200 MG, DAILY
     Route: 048

REACTIONS (8)
  - Coordination abnormal [Unknown]
  - Pain in extremity [Unknown]
  - Dysstasia [Unknown]
  - Pain [Unknown]
  - Crying [Unknown]
  - Hyperaesthesia [Unknown]
  - Death [Fatal]
  - Therapeutic response unexpected [Unknown]
